FAERS Safety Report 7504057-0 (Version None)
Quarter: 2011Q2

REPORT INFORMATION
  Report Type: 
  Country: None (occurrence: None)
  Receive Date: 20110401
  Receipt Date: 20100818
  Transmission Date: 20111010
  Serious: Yes (Other)
  Sender: FDA-Public Use
  Company Number: 243949USA

PATIENT

DRUGS (1)
  1. ETOPOSIDE [Suspect]
     Dosage: (20 MG/ML)

REACTIONS (5)
  - FLUSHING [None]
  - VOMITING [None]
  - BACK PAIN [None]
  - PRESYNCOPE [None]
  - NAUSEA [None]
